FAERS Safety Report 9096198 (Version 1)
Quarter: 2013Q1

REPORT INFORMATION
  Report Type: Spontaneous
  Country: ES (occurrence: ES)
  Receive Date: 20130207
  Receipt Date: 20130207
  Transmission Date: 20140127
  Serious: Yes (Hospitalization)
  Sender: FDA-Public Use
  Company Number: ES-ELI_LILLY_AND_COMPANY-ES201301009306

PATIENT
  Age: 84 Year
  Sex: Female
  Weight: 155 kg

DRUGS (14)
  1. FORSTEO [Suspect]
     Indication: OSTEOPOROSIS
     Dosage: 20 UG, QD
     Route: 058
     Dates: start: 20111228
  2. GLUMIDA [Concomitant]
     Indication: DIABETES MELLITUS
     Dosage: UNK, TID
     Route: 048
     Dates: start: 2004
  3. ORFIDAL [Concomitant]
     Indication: RESTLESSNESS
     Dosage: UNK, QD
     Route: 048
     Dates: start: 2009
  4. DETRUSITOL [Concomitant]
     Indication: URINARY INCONTINENCE
     Dosage: UNK, QD
     Route: 048
     Dates: start: 2005
  5. ADIRO [Concomitant]
     Indication: PLATELET AGGREGATION
     Dosage: UNK, QD
     Route: 048
     Dates: start: 2006
  6. PARIET [Concomitant]
     Indication: PROPHYLAXIS AGAINST GASTROINTESTINAL ULCER
     Dosage: UNK, QD
     Route: 048
     Dates: start: 2008
  7. SIMVASTATIN [Concomitant]
     Indication: HYPERCHOLESTEROLAEMIA
     Dosage: UNK, QD
     Route: 048
     Dates: start: 2004
  8. EXELON [Concomitant]
     Indication: DEMENTIA ALZHEIMER^S TYPE
     Dosage: UNK, QD
     Dates: start: 2010
  9. AXURA [Concomitant]
     Indication: DEMENTIA ALZHEIMER^S TYPE
     Dosage: UNK, QID
     Route: 048
     Dates: start: 201109
  10. DICLOFENACO                        /00372302/ [Concomitant]
     Indication: ANALGESIC THERAPY
     Dosage: UNK, PRN
     Route: 048
     Dates: start: 2009
  11. PARACETAMOL [Concomitant]
     Indication: ANALGESIC THERAPY
     Dosage: UNK, PRN
     Route: 048
     Dates: start: 2009
  12. IBERCAL D [Concomitant]
     Indication: OSTEOPOROSIS
     Dosage: UNK, QD
     Route: 048
     Dates: start: 2008
  13. HIDROFEROL [Concomitant]
     Indication: OSTEOPOROSIS
     Dosage: UNK, QD
     Route: 048
     Dates: start: 2008
  14. ATOVAQUONE [Concomitant]
     Indication: RHINORRHOEA
     Dosage: UNK, PRN
     Route: 048
     Dates: start: 2010

REACTIONS (2)
  - Fall [Recovered/Resolved]
  - Respiratory tract infection [Recovered/Resolved]
